FAERS Safety Report 7050129-7 (Version None)
Quarter: 2010Q4

REPORT INFORMATION
  Report Type: 
  Country: None (occurrence: None)
  Receive Date: 20101018
  Receipt Date: 20101007
  Transmission Date: 20110411
  Serious: Yes (Hospitalization)
  Sender: FDA-Public Use
  Company Number: JP-MERCK-1009USA00713

PATIENT
  Age: 80 Year
  Sex: Male

DRUGS (4)
  1. ZETIA [Suspect]
     Indication: HYPERCHOLESTEROLAEMIA
     Route: 048
     Dates: start: 20090401, end: 20100727
  2. CHLORMADINONE ACETATE [Concomitant]
     Route: 065
     Dates: start: 20070618
  3. GOSERELIN ACETATE [Concomitant]
     Route: 065
     Dates: start: 20070717
  4. NAFTOPIDIL [Concomitant]
     Route: 065
     Dates: start: 20100405

REACTIONS (1)
  - RENAL IMPAIRMENT [None]
